FAERS Safety Report 21782862 (Version 2)
Quarter: 2022Q4

REPORT INFORMATION
  Report Type: Spontaneous
  Country: TH (occurrence: TH)
  Receive Date: 20221227
  Receipt Date: 20221229
  Transmission Date: 20230113
  Serious: Yes (Other)
  Sender: FDA-Public Use
  Company Number: TH-002147023-NVSC2022TH294903

PATIENT
  Age: 59 Year
  Sex: Female

DRUGS (3)
  1. RIBOCICLIB [Suspect]
     Active Substance: RIBOCICLIB
     Indication: Breast cancer
     Dosage: 200 UNK (2X1 PO PC (3WEEK ON, 1 WEEK OFF)
     Route: 065
     Dates: start: 20221122
  2. LETROZOLE [Suspect]
     Active Substance: LETROZOLE
     Indication: Breast cancer
     Dosage: 1 DOSAGE FORM, QD
     Route: 065
     Dates: start: 20221102
  3. DENOSUMAB [Concomitant]
     Active Substance: DENOSUMAB
     Indication: Product used for unknown indication
     Dosage: UNK
     Route: 065
     Dates: start: 20221122

REACTIONS (15)
  - Carcinoembryonic antigen increased [Unknown]
  - Hypokalaemia [Unknown]
  - Haemoglobin decreased [Unknown]
  - Haematocrit decreased [Unknown]
  - Alanine aminotransferase increased [Unknown]
  - Blood alkaline phosphatase increased [Unknown]
  - Carbohydrate antigen 15-3 increased [Unknown]
  - Neutrophil count increased [Unknown]
  - Neutrophil count decreased [Unknown]
  - White blood cell count decreased [Unknown]
  - Diarrhoea [Recovered/Resolved]
  - Vomiting [Recovered/Resolved]
  - Nausea [Unknown]
  - Decreased appetite [Unknown]
  - Therapeutic response decreased [Unknown]
